FAERS Safety Report 7949378-2 (Version None)
Quarter: 2011Q4

REPORT INFORMATION
  Report Type: 
  Country: None (occurrence: None)
  Receive Date: 20111125
  Receipt Date: 20111116
  Transmission Date: 20120403
  Serious: No
  Sender: FDA-Public Use
  Company Number: ADR-2011-11579

PATIENT
  Sex: Male

DRUGS (1)
  1. BACLOFEN [Suspect]

REACTIONS (1)
  - ILL-DEFINED DISORDER [None]
